FAERS Safety Report 12799056 (Version 1)
Quarter: 2016Q3

REPORT INFORMATION
  Report Type: Report from Study
  Country: CA (occurrence: CA)
  Receive Date: 20160930
  Receipt Date: 20160930
  Transmission Date: 20161109
  Serious: Yes (Hospitalization)
  Sender: FDA-Public Use
  Company Number: CA-ABBVIE-16P-028-1740012-00

PATIENT
  Age: 83 Year
  Sex: Male

DRUGS (1)
  1. LUPRON DEPOT [Suspect]
     Active Substance: LEUPROLIDE ACETATE
     Indication: PRODUCT USED FOR UNKNOWN INDICATION
     Route: 030
     Dates: start: 20151215

REACTIONS (2)
  - Bladder neoplasm [Recovering/Resolving]
  - Prostatic disorder [Recovering/Resolving]

NARRATIVE: CASE EVENT DATE: 20160908
